FAERS Safety Report 8928251 (Version 2)
Quarter: 2013Q1

REPORT INFORMATION
  Report Type: Spontaneous
  Country: US (occurrence: US)
  Receive Date: 20121128
  Receipt Date: 20130122
  Transmission Date: 20140127
  Serious: No
  Sender: FDA-Public Use
  Company Number: US-BIOGENIDEC-2012BI054197

PATIENT
  Age: 47 None
  Sex: Female

DRUGS (3)
  1. TYSABRI [Suspect]
     Indication: MULTIPLE SCLEROSIS
     Route: 042
     Dates: start: 20070119, end: 20111004
  2. TYSABRI [Suspect]
     Indication: MULTIPLE SCLEROSIS
     Route: 042
     Dates: start: 20121206, end: 20121206
  3. AVONEX [Concomitant]
     Indication: MULTIPLE SCLEROSIS
     Route: 030
     Dates: start: 20001215

REACTIONS (6)
  - Heart rate increased [Unknown]
  - Pain [Unknown]
  - Dysphonia [Recovered/Resolved]
  - Multiple sclerosis relapse [Unknown]
  - Hypersensitivity [Unknown]
  - Headache [Unknown]
